FAERS Safety Report 18142077 (Version 2)
Quarter: 2021Q3

REPORT INFORMATION
  Report Type: Spontaneous
  Country: ES (occurrence: ES)
  Receive Date: 20200813
  Receipt Date: 20210809
  Transmission Date: 20211014
  Serious: Yes (Hospitalization)
  Sender: FDA-Public Use
  Company Number: ES-SUN PHARMACEUTICAL INDUSTRIES LTD-2020RR-256906

PATIENT
  Age: 32 Year
  Sex: Female

DRUGS (5)
  1. HALOPERIDOL (1693A) [Suspect]
     Active Substance: HALOPERIDOL
     Indication: BIPOLAR DISORDER
     Dosage: 30 GTT DROPS, DAILY
     Route: 048
     Dates: start: 20200425, end: 20200627
  2. SERTRALINE [Suspect]
     Active Substance: SERTRALINE HYDROCHLORIDE
     Indication: BIPOLAR DISORDER
     Dosage: 100 MILLIGRAM, DAILY
     Route: 048
     Dates: start: 1999, end: 20200424
  3. DEPAKINE [VALPROATE SODIUM] [Suspect]
     Active Substance: VALPROATE SODIUM
     Indication: BIPOLAR DISORDER
     Dosage: 30 GTT DROPS, DAILY
     Route: 048
     Dates: start: 1999, end: 20200424
  4. RIVOTRIL [Suspect]
     Active Substance: CLONAZEPAM
     Indication: BIPOLAR DISORDER
     Dosage: 1 MILLIGRAM, DAILY
     Route: 048
     Dates: start: 1999, end: 20200424
  5. LAMOTRIGINA (2579A) [Suspect]
     Active Substance: LAMOTRIGINE
     Indication: BIPOLAR DISORDER
     Dosage: UNK, DAILY
     Route: 048
     Dates: start: 20200425, end: 20200515

REACTIONS (2)
  - Foetal death [Unknown]
  - Exposure during pregnancy [Unknown]

NARRATIVE: CASE EVENT DATE: 20200617
